FAERS Safety Report 13689361 (Version 1)
Quarter: 2017Q2

REPORT INFORMATION
  Report Type: Spontaneous
  Country: US (occurrence: US)
  Receive Date: 20170625
  Receipt Date: 20170625
  Transmission Date: 20170830
  Serious: No
  Sender: FDA-Public Use
  Company Number: None

PATIENT
  Age: 64 Year
  Sex: Female
  Weight: 61.2 kg

DRUGS (9)
  1. NORTRIPTYLINE [Concomitant]
     Active Substance: NORTRIPTYLINE
  2. TRILEPTAL [Concomitant]
     Active Substance: OXCARBAZEPINE
  3. CALCIUM [Concomitant]
     Active Substance: CALCIUM
  4. SEROQUEL [Concomitant]
     Active Substance: QUETIAPINE FUMARATE
  5. NARATRIPTAN [Concomitant]
     Active Substance: NARATRIPTAN HYDROCHLORIDE
  6. NEUTROGENA ULTRA SHEER DRY TOUCH SUNSCREEN BROAD SPECTRUM SPF100 PLUS [Suspect]
     Active Substance: AVOBENZONE\HOMOSALATE\OCTISALATE\OCTOCRYLENE\OXYBENZONE
     Indication: PROPHYLAXIS AGAINST SOLAR RADIATION
     Dosage: ?          OTHER STRENGTH:ML;QUANTITY:0.1 OUNCE(S);?
     Route: 061
     Dates: start: 20170619, end: 20170619
  7. TAMOXIFEN [Concomitant]
     Active Substance: TAMOXIFEN
  8. VITAMIN D [Concomitant]
     Active Substance: CHOLECALCIFEROL
  9. ANTI-AGING VITAMIN SUPPLEMENT CALLED ^GLOW^ [Concomitant]

REACTIONS (4)
  - Application site pain [None]
  - Rash erythematous [None]
  - Rash [None]
  - Application site rash [None]

NARRATIVE: CASE EVENT DATE: 20170619
